FAERS Safety Report 23284207 (Version 21)
Quarter: 2025Q4

REPORT INFORMATION
  Report Type: Report from Study
  Country: US (occurrence: US)
  Receive Date: 20231211
  Receipt Date: 20251226
  Transmission Date: 20260117
  Serious: Yes (Hospitalization, Other)
  Sender: SANDOZ
  Company Number: US-002147023-NVSC2022US229363

PATIENT
  Age: 9 Year
  Sex: Male
  Weight: 29.4 kg

DRUGS (46)
  1. TREPROSTINIL [Suspect]
     Active Substance: TREPROSTINIL
     Indication: Pulmonary arterial hypertension
     Dosage: 5 MG/ML DUMP
  2. TREPROSTINIL [Suspect]
     Active Substance: TREPROSTINIL
     Dosage: 65 NG/KG/MIN (5 MG/ML)
  3. TREPROSTINIL [Suspect]
     Active Substance: TREPROSTINIL
     Dosage: 60 NG/KG/MIN, CONT
  4. TREPROSTINIL [Suspect]
     Active Substance: TREPROSTINIL
     Dosage: 60 NG/KG/MIN, CONT
  5. TREPROSTINIL [Suspect]
     Active Substance: TREPROSTINIL
     Dosage: 62 NG/KG/MIN, CONT
  6. TREPROSTINIL [Suspect]
     Active Substance: TREPROSTINIL
     Dosage: 69 NG/KG/ MIN
  7. TREPROSTINIL [Suspect]
     Active Substance: TREPROSTINIL
     Dosage: 69 NG/KG/ MIN(CONTINUOUS)
  8. TREPROSTINIL [Suspect]
     Active Substance: TREPROSTINIL
     Dosage: 69 NG/KG/MIN - SUBCUT, CONT
  9. TREPROSTINIL [Suspect]
     Active Substance: TREPROSTINIL
     Dosage: 74 NG/KG/MIN CONTINUOUS 2.5 MG/ML
  10. TREPROSTINIL [Suspect]
     Active Substance: TREPROSTINIL
     Dosage: 69 NG/KG/MIN (2.5 MG/ML)
  11. TREPROSTINIL [Suspect]
     Active Substance: TREPROSTINIL
     Dosage: 77 NG/KG/MIN, CONT
  12. TREPROSTINIL [Suspect]
     Active Substance: TREPROSTINIL
     Dosage: 89 NG/KG/MIN, CONT
  13. TREPROSTINIL [Suspect]
     Active Substance: TREPROSTINIL
     Dosage: 91 NG/KG/MIN, CONT
  14. TREPROSTINIL [Suspect]
     Active Substance: TREPROSTINIL
     Dosage: 91NG/KG/MIN, CONTINUOUS, STRENGTH: 5 MG/ML
  15. TREPROSTINIL [Suspect]
     Active Substance: TREPROSTINIL
     Dosage: 91 NG/KG/MIN, CONT, STRENGTH 5MG/ML
  16. TADALAFIL [Suspect]
     Active Substance: TADALAFIL
     Indication: Pulmonary hypertension
     Dosage: 20 MG, QD, 6 TUBES
     Dates: start: 20220225
  17. AMBRISENTAN [Suspect]
     Active Substance: AMBRISENTAN
     Indication: Pulmonary hypertension
     Dosage: 5 MG, QD
     Dates: start: 20220225
  18. SOTATERCEPT [Suspect]
     Active Substance: SOTATERCEPT
     Indication: Pulmonary hypertension
     Dosage: UNK
  19. SOTATERCEPT [Suspect]
     Active Substance: SOTATERCEPT
     Dosage: 45 MG, SQ
  20. SOTATERCEPT [Suspect]
     Active Substance: SOTATERCEPT
     Dosage: 20 MG, QD
     Dates: start: 202511
  21. SOTATERCEPT [Suspect]
     Active Substance: SOTATERCEPT
     Dosage: 20 MG, QD
     Dates: start: 202504
  22. TREPROSTINIL [Concomitant]
     Active Substance: TREPROSTINIL
     Indication: Product used for unknown indication
     Dosage: UNK
  23. IBUPROFEN [Concomitant]
     Active Substance: IBUPROFEN
     Indication: Product used for unknown indication
     Dosage: UNK
  24. ALBUTEROL SULFATE\IPRATROPIUM BROMIDE [Concomitant]
     Active Substance: ALBUTEROL SULFATE\IPRATROPIUM BROMIDE
     Indication: Product used for unknown indication
     Dosage: UNK
  25. ACETAMINOPHEN [Concomitant]
     Active Substance: ACETAMINOPHEN
     Indication: Product used for unknown indication
     Dosage: UNK
  26. CYPROHEPTADINE HYDROCHLORIDE [Concomitant]
     Active Substance: CYPROHEPTADINE HYDROCHLORIDE
     Indication: Product used for unknown indication
     Dosage: UNK
  27. FLUTICASONE PROPIONATE HFA [Concomitant]
     Active Substance: FLUTICASONE PROPIONATE
     Indication: Product used for unknown indication
     Dosage: UNK
  28. BISACODYL [Concomitant]
     Active Substance: BISACODYL
     Indication: Product used for unknown indication
     Dosage: UNK
  29. ALBUTEROL SULFATE [Concomitant]
     Active Substance: ALBUTEROL SULFATE
     Indication: Product used for unknown indication
     Dosage: UNK
  30. MELATONIN [Concomitant]
     Active Substance: MELATONIN
     Indication: Product used for unknown indication
     Dosage: UNK
  31. SODIUM CHLORIDE [Concomitant]
     Active Substance: SODIUM CHLORIDE
     Indication: Product used for unknown indication
     Dosage: UNK
  32. GLYCERIN [Concomitant]
     Active Substance: GLYCERIN
     Indication: Product used for unknown indication
     Dosage: UNK
  33. MONTELUKAST SODIUM [Concomitant]
     Active Substance: MONTELUKAST SODIUM
     Indication: Product used for unknown indication
     Dosage: UNK
  34. OXYGEN [Concomitant]
     Active Substance: OXYGEN
     Indication: Product used for unknown indication
     Dosage: UNK
  35. AZITHROMYCIN [Concomitant]
     Active Substance: AZITHROMYCIN
     Indication: Product used for unknown indication
     Dosage: UNK
  36. VITAMINS [Concomitant]
     Active Substance: VITAMINS
     Indication: Product used for unknown indication
     Dosage: UNK
  37. CETIRIZINE HCL [Concomitant]
     Active Substance: CETIRIZINE HYDROCHLORIDE
     Indication: Product used for unknown indication
     Dosage: UNK
  38. LIDOCAINE [Concomitant]
     Active Substance: LIDOCAINE
     Indication: Product used for unknown indication
     Dosage: UNK
  39. ATOMOXETINE HYDROCHLORIDE [Concomitant]
     Active Substance: ATOMOXETINE HYDROCHLORIDE
     Indication: Product used for unknown indication
     Dosage: UNK
  40. NASONEX [Concomitant]
     Active Substance: MOMETASONE FUROATE
     Indication: Product used for unknown indication
     Dosage: UNK
  41. EPINEPHRINE [Concomitant]
     Active Substance: EPINEPHRINE
     Indication: Product used for unknown indication
     Dosage: UNK
  42. NYSTATIN [Concomitant]
     Active Substance: NYSTATIN
     Indication: Product used for unknown indication
     Dosage: UNK
  43. LASIX [Concomitant]
     Active Substance: FUROSEMIDE
     Indication: Product used for unknown indication
     Dosage: 20 MG, BID
  44. SPIRONOLACTONE [Concomitant]
     Active Substance: SPIRONOLACTONE
     Indication: Product used for unknown indication
     Dosage: 25 MG, QD
  45. FUROSEMIDE [Concomitant]
     Active Substance: FUROSEMIDE
     Indication: Product used for unknown indication
     Dosage: UNK
  46. DESONIDE [Concomitant]
     Active Substance: DESONIDE
     Indication: Product used for unknown indication
     Dosage: UNK

REACTIONS (17)
  - Pneumonia [Unknown]
  - Respiratory syncytial virus infection [Unknown]
  - Upper respiratory tract infection [Unknown]
  - Rhinovirus infection [Unknown]
  - Respiratory disorder [Unknown]
  - Catheterisation cardiac [Unknown]
  - Hospitalisation [Unknown]
  - Pulmonary hypertension [Unknown]
  - Infusion site haemorrhage [Recovering/Resolving]
  - Pain [Recovering/Resolving]
  - Gastrointestinal surgery [Unknown]
  - Lymphadenopathy [Recovered/Resolved]
  - Gait disturbance [Unknown]
  - Pain in extremity [Recovered/Resolved]
  - Infusion site erythema [Recovered/Resolved]
  - Infusion site pain [Not Recovered/Not Resolved]
  - Infusion site erythema [Unknown]

NARRATIVE: CASE EVENT DATE: 20240809
